FAERS Safety Report 17693035 (Version 3)
Quarter: 2020Q2

REPORT INFORMATION
  Report Type: Spontaneous
  Country: CN (occurrence: CN)
  Receive Date: 20200422
  Receipt Date: 20200511
  Transmission Date: 20200714
  Serious: Yes (Death, Hospitalization)
  Sender: FDA-Public Use
  Company Number: CN-PFIZER INC-2020159180

PATIENT
  Age: 69 Year
  Sex: Female

DRUGS (1)
  1. IBRANCE [Suspect]
     Active Substance: PALBOCICLIB
     Indication: BREAST CANCER
     Dosage: 100 MG, DAILY
     Route: 048
     Dates: start: 201910, end: 202002

REACTIONS (5)
  - Hepatic failure [Fatal]
  - Decreased appetite [Unknown]
  - General physical health deterioration [Unknown]
  - Neoplasm progression [Unknown]
  - Renal failure [Fatal]

NARRATIVE: CASE EVENT DATE: 202002
